FAERS Safety Report 11994083 (Version 8)
Quarter: 2016Q3

REPORT INFORMATION
  Report Type: Spontaneous
  Country: US (occurrence: US)
  Receive Date: 20160203
  Receipt Date: 20160930
  Transmission Date: 20161109
  Serious: Yes (Life-Threatening, Hospitalization, Other)
  Sender: FDA-Public Use
  Company Number: US-PFIZER INC-2016049419

PATIENT
  Age: 68 Year
  Sex: Female
  Weight: 83.46 kg

DRUGS (18)
  1. CRANBERRY. [Concomitant]
     Active Substance: CRANBERRY
     Indication: URINARY TRACT DISORDER
     Dosage: 500 MG, ONCE EVERY OTHER DAY
  2. ATIVAN [Concomitant]
     Active Substance: LORAZEPAM
     Indication: MUSCLE RELAXANT THERAPY
     Dosage: UNK, AS NEEDED (-2 TABLETS EVERY 8 HRS PRN )
     Dates: start: 201406
  3. IBRANCE [Suspect]
     Active Substance: PALBOCICLIB
     Dosage: 125 MG, 1X/DAY
     Route: 048
     Dates: start: 201511
  4. LORAZEPAM. [Concomitant]
     Active Substance: LORAZEPAM
     Indication: ANXIETY DISORDER
     Dosage: 1 MG, AS NEEDED (1-2 TABLETS EVERY 8 HOURS AS NEEDED)
     Dates: start: 2008
  5. IBRANCE [Suspect]
     Active Substance: PALBOCICLIB
     Dosage: 100 MG, DAILY
     Route: 048
     Dates: start: 20151020
  6. LETROZOLE. [Concomitant]
     Active Substance: LETROZOLE
     Dosage: 1 DF, DAILY
     Dates: start: 201512
  7. XGEVA [Concomitant]
     Active Substance: DENOSUMAB
     Indication: METASTASES TO BONE
     Dosage: 120 MG, MONTHLY
     Route: 058
     Dates: start: 20140904
  8. ATIVAN [Concomitant]
     Active Substance: LORAZEPAM
     Indication: ANXIETY
  9. GABAPENTIN. [Concomitant]
     Active Substance: GABAPENTIN
     Indication: NEURALGIA
     Dosage: 1200 MG, 4X/DAY
     Dates: start: 2014
  10. IBRANCE [Suspect]
     Active Substance: PALBOCICLIB
     Dosage: 100 MG DAILY X 21 DAYS-THAN OFF 7 DAYS
     Route: 048
  11. LETROZOLE. [Concomitant]
     Active Substance: LETROZOLE
     Indication: BREAST CANCER METASTATIC
     Dosage: 2.5 MG, CYCLIC ONCE A DAY
     Route: 048
     Dates: start: 2009
  12. LETROZOLE. [Concomitant]
     Active Substance: LETROZOLE
     Dosage: 2.5 MG, DAILY
     Dates: start: 20151020
  13. IBRANCE [Suspect]
     Active Substance: PALBOCICLIB
     Dosage: 100 MG, 1X/DAY (W/FOOD FOR 21 DAYS)
     Route: 048
     Dates: start: 201512
  14. GABAPENTIN. [Concomitant]
     Active Substance: GABAPENTIN
     Indication: NEUROPATHY PERIPHERAL
     Dosage: 1200 MG, 4X/DAY (600 MG 2 TABLETS 4 TIMES A DAY AS NEEDED EVERY 6 HOURS)
     Route: 048
     Dates: start: 201501
  15. TYLENOL [Concomitant]
     Active Substance: ACETAMINOPHEN
     Indication: BONE PAIN
     Dosage: 500 MG, AS NEEDED (3X/DAY)
     Dates: start: 2000
  16. TYLENOL [Concomitant]
     Active Substance: ACETAMINOPHEN
     Dosage: 500 MG, AS NEEDED
     Route: 048
     Dates: start: 2010
  17. IBRANCE [Suspect]
     Active Substance: PALBOCICLIB
     Indication: BREAST CANCER METASTATIC
     Dosage: UNK
     Dates: end: 201501
  18. IBRANCE [Suspect]
     Active Substance: PALBOCICLIB
     Dosage: 125 MG, CYCLIC (ONCE A DAY FOR 21 DAYS, THEN OFF 7 DAYS)
     Route: 048
     Dates: start: 201511

REACTIONS (9)
  - Haemoglobin decreased [Unknown]
  - Alopecia [Unknown]
  - Fall [Recovered/Resolved]
  - Neutrophil count decreased [Unknown]
  - White blood cell count decreased [Unknown]
  - Sepsis [Recovered/Resolved]
  - Urinary tract infection [Recovered/Resolved]
  - Somnolence [Unknown]
  - Asthenia [Unknown]

NARRATIVE: CASE EVENT DATE: 20160101
